FAERS Safety Report 6953828-8 (Version None)
Quarter: 2010Q3

REPORT INFORMATION
  Report Type: 
  Country: None (occurrence: None)
  Receive Date: 20100829
  Receipt Date: 20100625
  Transmission Date: 20110219
  Serious: No
  Sender: FDA-Public Use
  Company Number: US-ABBOTT-10P-163-0653555-00

PATIENT
  Sex: Female
  Weight: 81.72 kg

DRUGS (11)
  1. NIASPAN [Suspect]
     Indication: LOW DENSITY LIPOPROTEIN
     Dosage: AT BEDTIME
     Dates: start: 20100603
  2. NIASPAN [Suspect]
     Indication: BLOOD TRIGLYCERIDES ABNORMAL
  3. ASPIRIN [Concomitant]
     Indication: PRODUCT USED FOR UNKNOWN INDICATION
  4. MULTI-VITAMIN [Concomitant]
     Indication: PRODUCT USED FOR UNKNOWN INDICATION
  5. DIOVAN [Concomitant]
     Indication: PRODUCT USED FOR UNKNOWN INDICATION
  6. PRILOSEC [Concomitant]
     Indication: PRODUCT USED FOR UNKNOWN INDICATION
  7. COREG [Concomitant]
     Indication: PRODUCT USED FOR UNKNOWN INDICATION
     Dosage: 1/2 A PILL, TWICE DAILY
  8. GLUCOSAMINE [Concomitant]
     Indication: PRODUCT USED FOR UNKNOWN INDICATION
     Dosage: 1500/1200 X 2 DAILY
  9. FISH OIL [Concomitant]
     Indication: PRODUCT USED FOR UNKNOWN INDICATION
     Dosage: EVERY DAY
  10. DETROL [Concomitant]
     Indication: PRODUCT USED FOR UNKNOWN INDICATION
  11. CALCIUM CITRATE WITH VIT D [Concomitant]
     Indication: PRODUCT USED FOR UNKNOWN INDICATION

REACTIONS (4)
  - JOINT SWELLING [None]
  - PRURITUS [None]
  - SWELLING [None]
  - WEIGHT INCREASED [None]
